FAERS Safety Report 9320364 (Version 1)
Quarter: 2013Q2

REPORT INFORMATION
  Report Type: Spontaneous
  Country: JP (occurrence: JP)
  Receive Date: 20130530
  Receipt Date: 20130530
  Transmission Date: 20140414
  Serious: Yes (Hospitalization)
  Sender: FDA-Public Use
  Company Number: JP-B.I. PHARMACEUTICALS,INC./RIDGEFIELD-2013-BI-14336NB

PATIENT
  Sex: 0

DRUGS (1)
  1. MOBIC [Suspect]
     Route: 048

REACTIONS (1)
  - Gastric disorder [Unknown]
